FAERS Safety Report 10056904 (Version 1)
Quarter: 2014Q2

REPORT INFORMATION
  Report Type: Spontaneous
  Country: US (occurrence: ES)
  Receive Date: 20140403
  Receipt Date: 20140403
  Transmission Date: 20141212
  Serious: Yes (Hospitalization)
  Sender: FDA-Public Use
  Company Number: ES-FRI-1000066074

PATIENT
  Age: 75 Year
  Sex: Male
  Weight: 83 kg

DRUGS (5)
  1. ROFLUMILAST [Suspect]
     Indication: CHRONIC OBSTRUCTIVE PULMONARY DISEASE
     Dosage: 500 MCG
     Route: 048
     Dates: start: 20140101
  2. SPIRIVA [Concomitant]
     Dates: start: 1999
  3. FORMODUAL [Concomitant]
     Dates: start: 1999
  4. VENTOLIN [Concomitant]
     Dates: start: 1999
  5. ALDACTONE [Concomitant]
     Dates: start: 201401

REACTIONS (1)
  - Respiratory tract infection [Unknown]
